FAERS Safety Report 20854268 (Version 1)
Quarter: 2022Q2

REPORT INFORMATION
  Report Type: Spontaneous
  Country: TW (occurrence: TW)
  Receive Date: 20220520
  Receipt Date: 20220520
  Transmission Date: 20220721
  Serious: Yes (Death, Hospitalization, Other)
  Sender: FDA-Public Use
  Company Number: TW-BAYER-2022A068556

PATIENT
  Age: 81 Year
  Sex: Female

DRUGS (1)
  1. SORAFENIB [Suspect]
     Active Substance: SORAFENIB
     Indication: Hepatocellular carcinoma
     Dosage: UNK
     Dates: start: 20210512

REACTIONS (11)
  - Death [Fatal]
  - Hepatocellular carcinoma [None]
  - Hepatic failure [None]
  - Hepatic function abnormal [None]
  - Jaundice cholestatic [None]
  - Disseminated intravascular coagulation [None]
  - Dizziness [None]
  - Gait disturbance [None]
  - Abdominal distension [None]
  - Decreased appetite [None]
  - Blood bilirubin increased [None]
